FAERS Safety Report 8157656-X (Version None)
Quarter: 2012Q1

REPORT INFORMATION
  Report Type: 
  Country: None (occurrence: None)
  Receive Date: 20120222
  Receipt Date: 20120209
  Transmission Date: 20120608
  Serious: Yes (Other)
  Sender: FDA-Public Use
  Company Number: GB-ASTRAZENECA-2011SE78954

PATIENT
  Sex: Male
  Weight: 13.5 kg

DRUGS (2)
  1. PRILOSEC [Suspect]
     Indication: GASTROINTESTINAL STOMA COMPLICATION
     Route: 048
  2. OMEPRAZOLE [Suspect]
     Route: 042

REACTIONS (2)
  - DRUG INEFFECTIVE [None]
  - GASTROINTESTINAL STOMA COMPLICATION [None]
